FAERS Safety Report 24699950 (Version 2)
Quarter: 2025Q4

REPORT INFORMATION
  Report Type: Spontaneous
  Country: US (occurrence: US)
  Receive Date: 20241205
  Receipt Date: 20251113
  Transmission Date: 20260118
  Serious: Yes (Other)
  Sender: ALIMERA
  Company Number: US-ALIMERA SCIENCES LIMITED-US-A16013-24-000358

PATIENT
  Age: 66 Year
  Sex: Female

DRUGS (2)
  1. YUTIQ [Suspect]
     Active Substance: FLUOCINOLONE ACETONIDE
     Indication: Macular oedema
     Dosage: 0.18 MILLIGRAM, SINGLE, -UNKNOWN EYE
     Route: 031
     Dates: start: 20240501
  2. YUTIQ [Suspect]
     Active Substance: FLUOCINOLONE ACETONIDE
     Indication: Uveitis

REACTIONS (2)
  - Visual acuity reduced [Unknown]
  - Vision blurred [Unknown]

NARRATIVE: CASE EVENT DATE: 20240501
